FAERS Safety Report 22017325 (Version 1)
Quarter: 2023Q1

REPORT INFORMATION
  Report Type: Spontaneous
  Country: CN (occurrence: CN)
  Receive Date: 20230221
  Receipt Date: 20230221
  Transmission Date: 20230418
  Serious: Yes (Other)
  Sender: FDA-Public Use
  Company Number: CN-PFIZER INC-PV202300031477

PATIENT
  Age: 84 Year
  Sex: Male
  Weight: 64 kg

DRUGS (16)
  1. NIRMATRELVIR\RITONAVIR [Suspect]
     Active Substance: NIRMATRELVIR\RITONAVIR
     Indication: COVID-19
     Dosage: 250 MG, 2X/DAY
     Route: 048
     Dates: start: 20230116, end: 20230120
  2. NIRMATRELVIR\RITONAVIR [Suspect]
     Active Substance: NIRMATRELVIR\RITONAVIR
     Indication: Pneumonia viral
     Dosage: 250 MG, 2X/DAY
     Route: 048
     Dates: start: 20230123, end: 20230127
  3. TAMSULOSIN HYDROCHLORIDE [Suspect]
     Active Substance: TAMSULOSIN HYDROCHLORIDE
     Indication: Benign prostatic hyperplasia
     Dosage: 0.2 MG, 2X/DAY
     Route: 048
     Dates: start: 20230112, end: 20230130
  4. TAMSULOSIN HYDROCHLORIDE [Suspect]
     Active Substance: TAMSULOSIN HYDROCHLORIDE
     Indication: Urinary retention
  5. ATORVASTATIN CALCIUM [Suspect]
     Active Substance: ATORVASTATIN CALCIUM
     Indication: Aortic arteriosclerosis
     Dosage: 10 MG, 1X/DAY
     Route: 048
     Dates: start: 20230116, end: 20230130
  6. ATORVASTATIN CALCIUM [Suspect]
     Active Substance: ATORVASTATIN CALCIUM
     Indication: Arteriosclerosis coronary artery
  7. HEPARIN CALCIUM [Concomitant]
     Active Substance: HEPARIN CALCIUM
     Indication: COVID-19
     Dosage: 2050 IU, 2X/DAY
     Route: 058
     Dates: start: 20230116, end: 20230121
  8. HEPARIN CALCIUM [Concomitant]
     Active Substance: HEPARIN CALCIUM
     Indication: Pneumonia viral
  9. LANSOPRAZOLE [Concomitant]
     Active Substance: LANSOPRAZOLE
     Indication: Prophylaxis
     Dosage: 30 MG, 2X/DAY
     Route: 041
     Dates: start: 20230114, end: 20230130
  10. DEXAMETHASONE SODIUM PHOSPHATE [Concomitant]
     Active Substance: DEXAMETHASONE SODIUM PHOSPHATE
     Indication: COVID-19
     Dosage: 5 MG, 1X/DAY
     Route: 041
     Dates: start: 20230114, end: 20230122
  11. DEXAMETHASONE SODIUM PHOSPHATE [Concomitant]
     Active Substance: DEXAMETHASONE SODIUM PHOSPHATE
     Indication: Pneumonia viral
  12. PIPERACILLIN AND TAZOBACTAM [Concomitant]
     Active Substance: PIPERACILLIN SODIUM\TAZOBACTAM SODIUM
     Indication: Pneumonia
     Dosage: 4.5 G, 3X/DAY
     Route: 041
     Dates: start: 20230116, end: 20230129
  13. GLUTATHIONE [Concomitant]
     Active Substance: GLUTATHIONE
     Indication: Drug-induced liver injury
     Dosage: 1.8 G, 1X/DAY
     Route: 041
     Dates: start: 20230123, end: 20230130
  14. NIFEDIPINE SUSTAINED RELEASE TABLETS (II) [Concomitant]
     Indication: Hypertension
     Dosage: 20 MG, 1X/DAY
     Route: 048
     Dates: start: 20230112, end: 20230130
  15. FINASTERIDE [Concomitant]
     Active Substance: FINASTERIDE
     Indication: Benign prostatic hyperplasia
     Dosage: 5 MG, 1X/DAY
     Route: 041
     Dates: start: 20230112, end: 20230130
  16. FINASTERIDE [Concomitant]
     Active Substance: FINASTERIDE
     Indication: Urinary retention

REACTIONS (3)
  - Hepatic function abnormal [Recovering/Resolving]
  - Condition aggravated [Recovering/Resolving]
  - Drug-induced liver injury [Recovering/Resolving]

NARRATIVE: CASE EVENT DATE: 20230123
